FAERS Safety Report 7771542-6 (Version None)
Quarter: 2011Q3

REPORT INFORMATION
  Report Type: 
  Country: None (occurrence: None)
  Receive Date: 20110922
  Receipt Date: 20100527
  Transmission Date: 20111222
  Serious: No
  Sender: FDA-Public Use
  Company Number: US-ASTRAZENECA-2010SE50528

PATIENT
  Age: 15078 Day
  Sex: Female

DRUGS (6)
  1. SEROQUEL [Suspect]
     Route: 048
     Dates: start: 20060903
  2. FLEXERIL [Concomitant]
     Dates: start: 20060903
  3. LISINOPRIL [Concomitant]
     Dates: start: 20080311
  4. SEPTRA [Concomitant]
  5. AMOXICILLIN [Concomitant]
     Dates: start: 20060903
  6. ZYPREXA [Concomitant]

REACTIONS (7)
  - TYPE 2 DIABETES MELLITUS [None]
  - GLUCOSE TOLERANCE IMPAIRED [None]
  - TOOTH ABSCESS [None]
  - PAIN IN EXTREMITY [None]
  - STAPHYLOCOCCAL INFECTION [None]
  - UTERINE ENLARGEMENT [None]
  - COUGH [None]
